FAERS Safety Report 4387939-0 (Version None)
Quarter: 2004Q2

REPORT INFORMATION
  Report Type: 
  Country: None (occurrence: None)
  Receive Date: 20040630
  Receipt Date: 20040623
  Transmission Date: 20050107
  Serious: Yes (Hospitalization)
  Sender: FDA-Public Use
  Company Number: JP-MERCK-0406USA02205

PATIENT
  Sex: Female

DRUGS (4)
  1. FOSAMAX [Suspect]
     Route: 048
     Dates: start: 20040619, end: 20040621
  2. BENIDIPINE HYDROCHLORIDE [Concomitant]
     Route: 065
  3. CALCIUM ASPARTATE [Concomitant]
     Route: 065
  4. LIMAPROST [Suspect]
     Route: 048
     Dates: start: 20040619, end: 20040621

REACTIONS (1)
  - BLOOD PRESSURE INCREASED [None]
